FAERS Safety Report 7640613-7 (Version None)
Quarter: 2011Q3

REPORT INFORMATION
  Report Type: 
  Country: None (occurrence: None)
  Receive Date: 20110728
  Receipt Date: 20110725
  Transmission Date: 20111222
  Serious: Yes (Other)
  Sender: FDA-Public Use
  Company Number: GB-BRISTOL-MYERS SQUIBB COMPANY-15921117

PATIENT
  Age: 42 Year
  Sex: Male

DRUGS (2)
  1. TRIAMCINOLONE ACETONIDE [Suspect]
     Indication: ROTATOR CUFF SYNDROME
  2. LIDOCAINE [Suspect]
     Indication: ROTATOR CUFF SYNDROME
     Dosage: LIDOCAINE 1%
     Route: 052

REACTIONS (1)
  - CHORIORETINOPATHY [None]
